FAERS Safety Report 10753875 (Version 3)
Quarter: 2018Q3

REPORT INFORMATION
  Report Type: Spontaneous
  Country: FR (occurrence: FR)
  Receive Date: 20150202
  Receipt Date: 20180907
  Transmission Date: 20181010
  Serious: Yes (Death, Hospitalization)
  Sender: FDA-Public Use
  Company Number: PHHY2015FR010149

PATIENT
  Age: 86 Year
  Sex: Female
  Weight: 46.6 kg

DRUGS (11)
  1. FORADIL [Concomitant]
     Active Substance: FORMOTEROL FUMARATE
     Indication: PRODUCT USED FOR UNKNOWN INDICATION
     Route: 055
  2. GAVISCON [Concomitant]
     Active Substance: ALUMINUM HYDROXIDE\MAGNESIUM CARBONATE
     Indication: PRODUCT USED FOR UNKNOWN INDICATION
     Route: 065
  3. EXELON PATCH [Suspect]
     Active Substance: RIVASTIGMINE
     Indication: PRODUCT USED FOR UNKNOWN INDICATION
     Dosage: 4.6 MG, QD
     Route: 062
  4. LEPONEX [Suspect]
     Active Substance: CLOZAPINE
     Indication: DRUG ADMINISTRATION ERROR
  5. FOLIC ACID. [Concomitant]
     Active Substance: FOLIC ACID
     Indication: PRODUCT USED FOR UNKNOWN INDICATION
     Route: 065
  6. NITRIDERM [Concomitant]
     Active Substance: NITROGLYCERIN
     Indication: PRODUCT USED FOR UNKNOWN INDICATION
     Dosage: 5 MG, QD
     Route: 062
  7. NITRIDERM TTS [Concomitant]
     Active Substance: NITROGLYCERIN
     Indication: PRODUCT USED FOR UNKNOWN INDICATION
     Dosage: PATCH
     Route: 062
  8. LEPONEX [Suspect]
     Active Substance: CLOZAPINE
     Indication: DRUG DISPENSED TO WRONG PATIENT
     Dosage: 100 MG, QD
     Route: 048
     Dates: start: 20141231, end: 20141231
  9. LEPTICUR [Suspect]
     Active Substance: TROPATEPINE HYDROCHLORIDE
     Indication: DYSKINESIA
     Dosage: 10 MG/ 2 ML, QD (ONE PHIAL)
     Route: 065
     Dates: start: 20141231
  10. LEPTICUR [Suspect]
     Active Substance: TROPATEPINE HYDROCHLORIDE
     Dosage: 1 DF, UNK
     Route: 065
     Dates: start: 20150101, end: 20150101
  11. FORADIL [Concomitant]
     Active Substance: FORMOTEROL FUMARATE
     Route: 065

REACTIONS (7)
  - Arrhythmia [Fatal]
  - Hypersensitivity [Unknown]
  - Agitation [Fatal]
  - Coma [Fatal]
  - Medication error [Unknown]
  - Unevaluable event [Fatal]
  - Drug interaction [Unknown]

NARRATIVE: CASE EVENT DATE: 20141231
